FAERS Safety Report 18674927 (Version 2)
Quarter: 2021Q1

REPORT INFORMATION
  Report Type: Report from Study
  Country: BR (occurrence: BR)
  Receive Date: 20201229
  Receipt Date: 20210112
  Transmission Date: 20210419
  Serious: Yes (Disabling, Other)
  Sender: FDA-Public Use
  Company Number: NVSC2020BR343154

PATIENT
  Sex: Male
  Weight: 30 kg

DRUGS (3)
  1. RITALINA LA [Suspect]
     Active Substance: METHYLPHENIDATE HYDROCHLORIDE
     Dosage: 20 MG, QD (1 DF) (STARTED ABOUT 1 YEAR AGO)
     Route: 048
  2. RITALINA LA [Suspect]
     Active Substance: METHYLPHENIDATE HYDROCHLORIDE
     Indication: ATTENTION DEFICIT HYPERACTIVITY DISORDER
     Dosage: 10 MG, QD (1 DF) (STARTED ABOUT 3 YEARS AGO)
     Route: 048
  3. RITALINA LA [Suspect]
     Active Substance: METHYLPHENIDATE HYDROCHLORIDE
     Dosage: 30 MG, QD (1 DF) (ABOUT 6 MONTHS AGO)
     Route: 048

REACTIONS (2)
  - Autism spectrum disorder [Unknown]
  - Intellectual disability [Not Recovered/Not Resolved]

NARRATIVE: CASE EVENT DATE: 2019
